FAERS Safety Report 12333187 (Version 2)
Quarter: 2016Q2

REPORT INFORMATION
  Report Type: Spontaneous
  Country: DE (occurrence: DE)
  Receive Date: 20160504
  Receipt Date: 20160511
  Transmission Date: 20160815
  Serious: Yes (Other)
  Sender: FDA-Public Use
  Company Number: DE-JNJFOC-20160426912

PATIENT

DRUGS (1)
  1. INFLIXIMAB, RECOMBINANT [Suspect]
     Active Substance: INFLIXIMAB
     Indication: ANKYLOSING SPONDYLITIS
     Route: 042

REACTIONS (25)
  - Infection [Unknown]
  - Hepatic enzyme increased [Unknown]
  - Nephrolithiasis [Unknown]
  - Malignant melanoma [Unknown]
  - Inflammatory bowel disease [Unknown]
  - Hypertension [Unknown]
  - Urinary tract infection [Unknown]
  - Osteoarthritis [Unknown]
  - Adverse drug reaction [Unknown]
  - Chest pain [Unknown]
  - Adverse event [Unknown]
  - Respiratory tract infection [Unknown]
  - Iridocyclitis [Unknown]
  - Psoriasis [Unknown]
  - Arthralgia [Unknown]
  - Gastrointestinal infection [Unknown]
  - Skin infection [Unknown]
  - Accident [Unknown]
  - Intervertebral disc protrusion [Unknown]
  - Infusion related reaction [Unknown]
  - Ankylosing spondylitis [Unknown]
  - Traumatic haemothorax [Unknown]
  - Rib fracture [Unknown]
  - Duodenal ulcer [Unknown]
  - Depression [Unknown]
